FAERS Safety Report 8010205-9 (Version None)
Quarter: 2011Q4

REPORT INFORMATION
  Report Type: 
  Country: None (occurrence: None)
  Receive Date: 20111221
  Receipt Date: 20111215
  Transmission Date: 20120403
  Serious: Yes (Other)
  Sender: FDA-Public Use
  Company Number: 2011SP050632

PATIENT
  Age: 36 Year
  Sex: Female

DRUGS (2)
  1. IMPLANON [Suspect]
     Indication: CONTRACEPTION
     Dosage: 1 DF
     Dates: start: 20091124
  2. IMPLANON [Suspect]
     Indication: CONTRACEPTION
     Dosage: 1 DF, 1DF
     Dates: start: 20030101

REACTIONS (2)
  - ANGIOEDEMA [None]
  - DEVICE DIFFICULT TO USE [None]
